FAERS Safety Report 17616210 (Version 2)
Quarter: 2020Q2

REPORT INFORMATION
  Report Type: Spontaneous
  Country: FI (occurrence: FI)
  Receive Date: 20200402
  Receipt Date: 20200622
  Transmission Date: 20200713
  Serious: Yes (Other)
  Sender: FDA-Public Use
  Company Number: FI-ELI_LILLY_AND_COMPANY-FI202003001389

PATIENT
  Age: 43 Year
  Sex: Male

DRUGS (3)
  1. ZYPADHERA [Suspect]
     Active Substance: OLANZAPINE PAMOATE
     Indication: SCHIZOPHRENIA
     Dosage: 300 MG, OTHER (ONCE IN 3 WEEKS)
     Route: 030
     Dates: start: 20190123
  2. ZYPADHERA [Suspect]
     Active Substance: OLANZAPINE PAMOATE
     Indication: SCHIZOPHRENIA
     Dosage: 300 MG, OTHER (ONCE IN 3 WEEKS)
     Route: 030
     Dates: start: 20190123
  3. ZYPADHERA [Suspect]
     Active Substance: OLANZAPINE PAMOATE
     Indication: SCHIZOPHRENIA
     Dosage: 300 MG, OTHER (ONCE IN 3 WEEKS)
     Route: 030
     Dates: start: 20190123

REACTIONS (1)
  - Post-injection delirium sedation syndrome [Recovered/Resolved]

NARRATIVE: CASE EVENT DATE: 20200302
